FAERS Safety Report 9315002 (Version 1)
Quarter: 2013Q2

REPORT INFORMATION
  Report Type: Report from Study
  Country: JP (occurrence: JP)
  Receive Date: 20130529
  Receipt Date: 20130529
  Transmission Date: 20140414
  Serious: Yes (Death)
  Sender: FDA-Public Use
  Company Number: JP-GLAXOSMITHKLINE-B0894340A

PATIENT
  Age: 66 Year
  Sex: Female

DRUGS (10)
  1. VOTRIENT [Suspect]
     Indication: SOFT TISSUE CANCER
     Dosage: 800MG PER DAY
     Route: 048
     Dates: start: 20130124, end: 20130220
  2. CHINESE MEDICINE [Concomitant]
     Dosage: 2.5G THREE TIMES PER DAY
     Route: 048
     Dates: end: 20130320
  3. OMEPRAL [Concomitant]
     Dosage: 10MG PER DAY
     Route: 065
     Dates: end: 20130320
  4. FOLIAMIN [Concomitant]
     Dosage: 5MG THREE TIMES PER DAY
     Route: 065
     Dates: end: 20130320
  5. METHYCOBAL [Concomitant]
     Dosage: 500MCG THREE TIMES PER DAY
     Route: 065
     Dates: end: 20130320
  6. DOGMATYL [Concomitant]
     Dosage: 50MG TWICE PER DAY
     Route: 065
     Dates: end: 20130320
  7. COSPANON [Concomitant]
     Dosage: 40MG THREE TIMES PER DAY
     Route: 048
     Dates: end: 20130320
  8. CLARITH [Concomitant]
     Dosage: 200MG TWICE PER DAY
     Route: 048
     Dates: end: 20130320
  9. CEFZON [Concomitant]
     Dosage: 100MG THREE TIMES PER DAY
     Route: 048
     Dates: end: 20130320
  10. LOXONIN [Concomitant]
     Route: 062
     Dates: end: 20130320

REACTIONS (2)
  - Psoas abscess [Fatal]
  - Tumour haemorrhage [Fatal]
